FAERS Safety Report 8375591-9 (Version None)
Quarter: 2012Q1

REPORT INFORMATION
  Report Type: 
  Country: None (occurrence: None)
  Receive Date: 20120323
  Receipt Date: 20110413
  Transmission Date: 20120608
  Serious: Yes (Hospitalization)
  Sender: FDA-Public Use
  Company Number: 163-21880-11012740

PATIENT
  Age: 70 Year
  Sex: Male

DRUGS (22)
  1. GLIMEPIRIDE [Concomitant]
  2. SMZ/TMP (BACTRIM) (TABLETS) [Concomitant]
  3. PLAVIX [Concomitant]
  4. ALBUTEROL [Concomitant]
  5. REVLIMID [Suspect]
     Indication: MULTIPLE MYELOMA
     Dosage: 25 MG, DAILY, PO, 10 MG, DAILY, PO
     Route: 048
     Dates: start: 20100601
  6. REVLIMID [Suspect]
     Indication: MULTIPLE MYELOMA
     Dosage: 25 MG, DAILY, PO, 10 MG, DAILY, PO
     Route: 048
     Dates: start: 20081101
  7. PREDNISONE [Concomitant]
  8. DEXAMETHASONE [Concomitant]
  9. ACYCLOVIR [Concomitant]
  10. ALLOPURINOL [Concomitant]
  11. ASPIRIN [Concomitant]
  12. ZOMETA [Concomitant]
  13. ZYVOX (LINEZOLID) (TABLETS) [Concomitant]
  14. SINGULAIR [Concomitant]
  15. GLUCOPHAGE (METFORMIN HYDROCHLORIDE) (TABLETS) [Concomitant]
  16. JANUVIA [Concomitant]
  17. NOVOLOG [Concomitant]
  18. BYETTA [Concomitant]
  19. FLUVIRIN (INFLUENZA VIRUS VACCINE POLYVALENT) [Concomitant]
  20. DOXYCYCLINE HYCLATE (DOXYCYCLINE HYCLATE) [Concomitant]
  21. COREG CR (CARVEDILOL) (CAPSULES) [Concomitant]
  22. LEVOTHYROXIN (LEVOTHYROXINE SODIUM) (TABLETS) [Concomitant]

REACTIONS (4)
  - ENTEROCOCCAL INFECTION [None]
  - WHITE BLOOD CELL COUNT DECREASED [None]
  - PLATELET COUNT DECREASED [None]
  - URINARY TRACT INFECTION [None]
